FAERS Safety Report 9457950 (Version 4)
Quarter: 2014Q1

REPORT INFORMATION
  Report Type: Report from Study
  Country: US (occurrence: US)
  Receive Date: 20130814
  Receipt Date: 20140331
  Transmission Date: 20141002
  Serious: Yes (Other)
  Sender: FDA-Public Use
  Company Number: US-SANOFI-AVENTIS-2013SA053828

PATIENT
  Age: 51 Year
  Sex: Female

DRUGS (7)
  1. AUBAGIO [Suspect]
     Indication: MULTIPLE SCLEROSIS
     Route: 048
     Dates: start: 20130508
  2. AUBAGIO [Suspect]
     Indication: MULTIPLE SCLEROSIS
     Route: 048
  3. BETASERON [Concomitant]
     Indication: MULTIPLE SCLEROSIS
     Route: 065
     Dates: start: 2005, end: 201305
  4. DETROL [Concomitant]
     Indication: BLADDER DISORDER
     Route: 065
     Dates: start: 2011
  5. CYMBALTA [Concomitant]
     Indication: ANXIETY
     Route: 065
     Dates: start: 2002
  6. SIMVASTATIN [Concomitant]
     Route: 065
     Dates: start: 2012
  7. VITAMIN D3 [Concomitant]
     Route: 065

REACTIONS (6)
  - Diabetes mellitus [Unknown]
  - Hypoaesthesia [Recovered/Resolved]
  - Bronchitis [Unknown]
  - Nasopharyngitis [Unknown]
  - Headache [Unknown]
  - Drug dose omission [Unknown]
